FAERS Safety Report 6630839-3 (Version None)
Quarter: 2010Q1

REPORT INFORMATION
  Report Type: 
  Country: None (occurrence: None)
  Receive Date: 20100311
  Receipt Date: 20100302
  Transmission Date: 20100710
  Serious: Yes (Other)
  Sender: FDA-Public Use
  Company Number: FR-PFIZER INC-2009306179

PATIENT
  Age: 76 Year
  Sex: Female
  Weight: 85 kg

DRUGS (6)
  1. TAHOR [Suspect]
     Indication: CARDIOVASCULAR EVENT PROPHYLAXIS
     Dosage: 40 MG, 1X/DAY
     Route: 048
     Dates: start: 20091121, end: 20091130
  2. KARDEGIC [Concomitant]
     Dosage: UNK
     Route: 048
     Dates: start: 20091121
  3. AVLOCARDYL [Concomitant]
     Dosage: UNK
     Route: 048
     Dates: start: 20091121
  4. TRIATEC [Concomitant]
     Dosage: UNK
     Route: 048
     Dates: start: 20091121
  5. ZOLOFT [Concomitant]
  6. INSULIN [Concomitant]
     Dosage: 44 IU, UNK
     Route: 058
     Dates: start: 20091019

REACTIONS (3)
  - MOBILITY DECREASED [None]
  - MUSCLE RIGIDITY [None]
  - MYALGIA [None]
